FAERS Safety Report 4864599-3 (Version None)
Quarter: 2005Q4

REPORT INFORMATION
  Report Type: 
  Country: None (occurrence: None)
  Receive Date: 20051222
  Receipt Date: 20051122
  Transmission Date: 20060501
  Serious: Yes (Hospitalization)
  Sender: FDA-Public Use
  Company Number: US-NOVOPROD-248772

PATIENT
  Age: 59 Year
  Sex: Male
  Weight: 141 kg

DRUGS (12)
  1. NOVOLOG MIX 70/30 [Suspect]
     Indication: INSULIN-REQUIRING TYPE II DIABETES MELLITUS
     Dosage: 44 U, QD
     Route: 058
     Dates: start: 20050928, end: 20051110
  2. NOVOLOG MIX 70/30 [Suspect]
     Dosage: 44 U, QD
     Route: 058
     Dates: start: 20051115
  3. ACTOS [Concomitant]
     Indication: INSULIN-REQUIRING TYPE II DIABETES MELLITUS
     Dosage: 30 MG, QD
     Route: 048
  4. ASPIRIN [Concomitant]
     Dosage: 81 MG, QD
     Route: 048
     Dates: start: 20010101
  5. GEMFIBROZIL [Concomitant]
     Dosage: 1200 MG, QD
     Route: 048
     Dates: start: 20010101
  6. POTASSIUM CHLORIDE [Concomitant]
     Indication: ELECTROLYTE SUBSTITUTION THERAPY
     Dosage: 8 MG, QD
     Route: 048
     Dates: start: 20010101
  7. AMIODARONE [Concomitant]
     Dosage: 200 MG, QD
     Route: 048
     Dates: start: 20050801
  8. ATENOLOL [Concomitant]
     Dosage: 50 MG, QD
     Route: 048
     Dates: start: 20050801
  9. GLIPIZIDE [Concomitant]
     Dosage: 10 MG, BID
     Route: 048
  10. LOPID [Concomitant]
     Dosage: 600 MG, QD
     Route: 048
  11. NITROGLYCERIN [Concomitant]
  12. CAPOTEN [Concomitant]
     Dosage: 50 MG, TID
     Route: 048

REACTIONS (8)
  - BRADYCARDIA [None]
  - CARDIAC FAILURE CONGESTIVE [None]
  - CARDIOMEGALY [None]
  - CONDITION AGGRAVATED [None]
  - LUNG INFILTRATION [None]
  - MYOCARDIAL ISCHAEMIA [None]
  - NOCTURNAL DYSPNOEA [None]
  - OEDEMA PERIPHERAL [None]
